FAERS Safety Report 5925476-X (Version None)
Quarter: 2008Q4

REPORT INFORMATION
  Report Type: 
  Country: None (occurrence: None)
  Receive Date: 20081021
  Receipt Date: 20081016
  Transmission Date: 20090506
  Serious: Yes (Other)
  Sender: FDA-Public Use
  Company Number: JP-AVENTIS-200812939JP

PATIENT

DRUGS (5)
  1. TAXOTERE [Suspect]
  2. TAXOTERE [Suspect]
  3. CISPLATIN [Concomitant]
  4. FLUOROURACIL [Concomitant]
  5. UNKNOWN DRUG [Concomitant]

REACTIONS (1)
  - LARYNGEAL OEDEMA [None]
